FAERS Safety Report 18253901 (Version 5)
Quarter: 2021Q1

REPORT INFORMATION
  Report Type: Spontaneous
  Country: US (occurrence: US)
  Receive Date: 20200910
  Receipt Date: 20210203
  Transmission Date: 20210419
  Serious: Yes (Hospitalization)
  Sender: FDA-Public Use
  Company Number: NVSC2020US247943

PATIENT
  Sex: Female

DRUGS (3)
  1. PIQRAY [Suspect]
     Active Substance: ALPELISIB
     Indication: NEOPLASM MALIGNANT
     Dosage: 2 DF
     Route: 065
  2. PIQRAY [Suspect]
     Active Substance: ALPELISIB
     Dosage: 1 DF
     Route: 065
  3. PIQRAY [Suspect]
     Active Substance: ALPELISIB
     Dosage: 150 MG, QD (X2 DAILY)
     Route: 065

REACTIONS (13)
  - Onychomadesis [Unknown]
  - Blister [Unknown]
  - Peripheral swelling [Unknown]
  - Initial insomnia [Unknown]
  - Condition aggravated [Unknown]
  - Blood glucose increased [Unknown]
  - Lymphoedema [Unknown]
  - Dyspnoea [Unknown]
  - Swelling [Unknown]
  - Nail discolouration [Unknown]
  - Chest discomfort [Unknown]
  - Intentional dose omission [Unknown]
  - Diarrhoea [Unknown]
